FAERS Safety Report 6162668-1 (Version None)
Quarter: 2009Q2

REPORT INFORMATION
  Report Type: 
  Country: None (occurrence: None)
  Receive Date: 20090421
  Receipt Date: 20081222
  Transmission Date: 20091009
  Serious: No
  Sender: FDA-Public Use
  Company Number: US-ASTRAZENECA-2008UW28522

PATIENT
  Age: 76 Year
  Sex: Male
  Weight: 97.5 kg

DRUGS (3)
  1. CASODEX [Suspect]
     Indication: PROSTATE CANCER
     Dosage: 50 MG
     Route: 048
     Dates: start: 20081209
  2. CASODEX [Suspect]
     Indication: BONE NEOPLASM MALIGNANT
     Dosage: 50 MG
     Route: 048
     Dates: start: 20081209
  3. CASODEX [Suspect]
     Indication: LUNG NEOPLASM MALIGNANT
     Dosage: 50 MG
     Route: 048
     Dates: start: 20081209

REACTIONS (1)
  - VISION BLURRED [None]
